FAERS Safety Report 6031723-9 (Version None)
Quarter: 2009Q1

REPORT INFORMATION
  Report Type: 
  Country: None (occurrence: None)
  Receive Date: 20090108
  Receipt Date: 20081230
  Transmission Date: 20090719
  Serious: Yes (Hospitalization)
  Sender: FDA-Public Use
  Company Number: B0552881A

PATIENT
  Age: 60 Year
  Sex: Female

DRUGS (5)
  1. CLAMOXYL [Suspect]
     Indication: SPINAL DISORDER
     Dosage: 2G FOUR TIMES PER DAY
     Route: 042
     Dates: start: 20081030
  2. GENTAMICIN SULFATE [Suspect]
     Indication: SPINAL DISORDER
     Dosage: 200MG TWICE PER DAY
     Route: 042
     Dates: start: 20081030, end: 20081130
  3. PREGABALIN [Suspect]
     Indication: DIABETIC NEUROPATHY
     Dosage: 75MG TWICE PER DAY
     Route: 048
     Dates: start: 20081030
  4. NIFEDIPINE [Concomitant]
     Indication: ESSENTIAL HYPERTENSION
     Dosage: 30MG TWICE PER DAY
     Route: 048
  5. INSULATARD [Concomitant]

REACTIONS (2)
  - BLOOD CREATINE INCREASED [None]
  - RENAL FAILURE ACUTE [None]
